FAERS Safety Report 5511407-3 (Version None)
Quarter: 2007Q4

REPORT INFORMATION
  Report Type: 
  Country: None (occurrence: None)
  Receive Date: 20071109
  Receipt Date: 20071107
  Transmission Date: 20080405
  Serious: Yes (Death)
  Sender: FDA-Public Use
  Company Number: DE-ROCHE-527024

PATIENT
  Sex: Male

DRUGS (1)
  1. XELODA [Suspect]
     Route: 065
     Dates: start: 20071007

REACTIONS (4)
  - ASTHENIA [None]
  - CHROMATURIA [None]
  - DEATH [None]
  - FATIGUE [None]
